FAERS Safety Report 26097775 (Version 1)
Quarter: 2025Q4

REPORT INFORMATION
  Report Type: Report from Study
  Country: US (occurrence: US)
  Receive Date: 20251127
  Receipt Date: 20251127
  Transmission Date: 20260117
  Serious: Yes (Hospitalization)
  Sender: ALEXION PHARMACEUTICALS
  Company Number: US-ASTRAZENECA-202511NAM023117US

PATIENT
  Age: 73 Year
  Sex: Male

DRUGS (2)
  1. STRENSIQ [Suspect]
     Active Substance: ASFOTASE ALFA
     Indication: Phosphorus metabolism disorder
     Dosage: 100 MILLIGRAM, SIX TIMES/WEEK (ROTATE INJECTION SITES)
     Route: 065
  2. STRENSIQ [Suspect]
     Active Substance: ASFOTASE ALFA
     Dosage: 100 MILLIGRAM, SIX TIMES/WEEK (ROTATE INJECTION SITES)
     Route: 065

REACTIONS (4)
  - Atypical pneumonia [Unknown]
  - Irritability [Unknown]
  - Insomnia [Unknown]
  - Pain [Unknown]
